FAERS Safety Report 19682110 (Version 2)
Quarter: 2021Q3

REPORT INFORMATION
  Report Type: Report from Study
  Country: DE (occurrence: DE)
  Receive Date: 20210810
  Receipt Date: 20210916
  Transmission Date: 20211014
  Serious: Yes (Hospitalization, Other)
  Sender: FDA-Public Use
  Company Number: DE-MYLANLABS-2021M1048908

PATIENT
  Sex: Female
  Weight: 90 kg

DRUGS (5)
  1. KISQALI [Suspect]
     Active Substance: RIBOCICLIB
     Dosage: 400 MG, QD (SCHEME 21 DAYS INTAKE, THAN 7 DAYS PAU)SE
     Route: 048
     Dates: start: 20200910, end: 20201007
  2. KISQALI [Suspect]
     Active Substance: RIBOCICLIB
     Dosage: 200 MG, QD (SCHEME 21 DAYS INTAKE, THAN 7 DAYS PAU)
     Route: 048
     Dates: start: 20201008, end: 20201027
  3. LETROZOLE. [Suspect]
     Active Substance: LETROZOLE
     Indication: BREAST CANCER METASTATIC
     Dosage: 2.5 MG, QD (SCHEME 21 DAYS INTAKE)
     Route: 048
     Dates: start: 20200803
  4. KISQALI [Suspect]
     Active Substance: RIBOCICLIB
     Indication: BREAST CANCER METASTATIC
     Dosage: 600 MG, QD (SCHEME 21 DAYS INTAKE, THAN 7 DAYS PAU)SE
     Route: 048
     Dates: start: 20200803, end: 20200807
  5. KISQALI [Suspect]
     Active Substance: RIBOCICLIB
     Dosage: 400 MG, QD (SCHEME 21 DAYS INTAKE, THAN 7 DAYS PAU)SE
     Route: 048
     Dates: start: 20201028

REACTIONS (12)
  - Diarrhoea [Recovered/Resolved]
  - Nervous system disorder [Recovered/Resolved]
  - Hypoaesthesia [Recovered/Resolved]
  - Neck pain [Recovered/Resolved]
  - Tremor [Recovered/Resolved]
  - Oedema peripheral [Not Recovered/Not Resolved]
  - Nocturnal dyspnoea [Recovered/Resolved]
  - Stress [Not Recovered/Not Resolved]
  - General physical health deterioration [Recovered/Resolved]
  - Leukopenia [Recovered/Resolved]
  - Blood pressure diastolic increased [Not Recovered/Not Resolved]
  - Swelling [Recovered/Resolved]

NARRATIVE: CASE EVENT DATE: 20200803
